FAERS Safety Report 7153375-7 (Version None)
Quarter: 2010Q4

REPORT INFORMATION
  Report Type: 
  Country: None (occurrence: None)
  Receive Date: 20101213
  Receipt Date: 20101203
  Transmission Date: 20110411
  Serious: Yes (Other)
  Sender: FDA-Public Use
  Company Number: US-RB-016397-10

PATIENT
  Age: 79 Year
  Sex: Female

DRUGS (1)
  1. DELSYM [Suspect]
     Route: 048

REACTIONS (2)
  - HALLUCINATION [None]
  - OVERDOSE [None]
